FAERS Safety Report 7200307-9 (Version None)
Quarter: 2010Q4

REPORT INFORMATION
  Report Type: 
  Country: None (occurrence: None)
  Receive Date: 20101228
  Receipt Date: 20101221
  Transmission Date: 20110411
  Serious: Yes (Hospitalization)
  Sender: FDA-Public Use
  Company Number: B0690344A

PATIENT
  Sex: Male

DRUGS (1)
  1. AUGMENTIN [Suspect]
     Dosage: 1TAB SINGLE DOSE
     Route: 048
     Dates: start: 20100325, end: 20100325

REACTIONS (5)
  - DERMATITIS EXFOLIATIVE [None]
  - DIARRHOEA [None]
  - HYPERSENSITIVITY [None]
  - MALAISE [None]
  - VOMITING [None]
